FAERS Safety Report 5585435-6 (Version None)
Quarter: 2008Q1

REPORT INFORMATION
  Report Type: 
  Country: None (occurrence: None)
  Receive Date: 20080109
  Receipt Date: 20080103
  Transmission Date: 20080703
  Serious: Yes (Hospitalization)
  Sender: FDA-Public Use
  Company Number: AU-BRISTOL-MYERS SQUIBB COMPANY-13887369

PATIENT
  Age: 69 Year
  Sex: Male

DRUGS (3)
  1. CARBOPLATIN [Suspect]
     Indication: LUNG NEOPLASM MALIGNANT
     Route: 042
     Dates: start: 20070314, end: 20070627
  2. PACLITAXEL [Suspect]
     Indication: LUNG NEOPLASM MALIGNANT
     Route: 042
     Dates: start: 20070314, end: 20070627
  3. PF-3512676 [Suspect]
     Indication: LUNG NEOPLASM MALIGNANT
     Dosage: ON DAYS 8 AND 15 OF EACH 21-DAY CYCLE FROM 21 MAR 2007 TO 14-JUN 2007
     Route: 058
     Dates: start: 20070321, end: 20070614

REACTIONS (1)
  - DEHYDRATION [None]
